FAERS Safety Report 24624456 (Version 1)
Quarter: 2024Q4

REPORT INFORMATION
  Report Type: Spontaneous
  Country: US (occurrence: None)
  Receive Date: 20241115
  Receipt Date: 20241115
  Transmission Date: 20250115
  Serious: Yes (Disabling)
  Sender: Public
  Company Number: None

PATIENT
  Age: 25 Year
  Sex: Female
  Weight: 72 kg

DRUGS (9)
  1. CLEARLAX [Suspect]
     Active Substance: POLYETHYLENE GLYCOL 3350
     Indication: Constipation
     Dosage: OTHER QUANTITY : 4 OUNCE(S);?FREQUENCY : EVERY 8 HOURS;?
     Route: 048
     Dates: start: 20240602, end: 20241001
  2. SYNTHROID [Concomitant]
     Active Substance: LEVOTHYROXINE SODIUM
  3. leothyroxine [Concomitant]
  4. CORTISOL [Concomitant]
     Active Substance: HYDROCORTISONE
  5. chest shaker vest [Concomitant]
  6. Trilogy BiPAP machine room air [Concomitant]
  7. Vitamin c [Concomitant]
  8. VITAMINS [Concomitant]
     Active Substance: VITAMINS
  9. VITAMIN D [Concomitant]
     Active Substance: VITAMIN D NOS

REACTIONS (3)
  - Gastrointestinal disorder [None]
  - Condition aggravated [None]
  - Illness [None]

NARRATIVE: CASE EVENT DATE: 20241010
